FAERS Safety Report 22292004 (Version 6)
Quarter: 2024Q1

REPORT INFORMATION
  Report Type: Report from Study
  Country: GB (occurrence: GB)
  Receive Date: 20230508
  Receipt Date: 20240202
  Transmission Date: 20240410
  Serious: Yes (Hospitalization, Other)
  Sender: FDA-Public Use
  Company Number: GB-ABBVIE-4730736

PATIENT
  Age: 67 Year
  Sex: Female

DRUGS (6)
  1. CARBIDOPA\LEVODOPA [Suspect]
     Active Substance: CARBIDOPA\LEVODOPA
     Indication: Parkinson^s disease
     Dosage: DUODOPA 20MG/5MG; MD:11.7 MLS, CR:3.9 ML/HR, ED:1.5 ML?FIRST ADMIN DATE 2023?LAST ADMIN DATE 2023
     Route: 050
  2. CARBIDOPA\LEVODOPA [Suspect]
     Active Substance: CARBIDOPA\LEVODOPA
     Dosage: MD:11.5 MLS, CR:3.7 ML/HR, ED:1.5 ML?FIRST ADMIN DATE  2023?LAST ADMIN DATE 2023
     Route: 050
  3. CARBIDOPA\LEVODOPA [Suspect]
     Active Substance: CARBIDOPA\LEVODOPA
     Dosage: CR:3.6 ML/HR?FIRST ADMIN DATE 2023
     Route: 050
     Dates: end: 20230906
  4. CARBIDOPA\LEVODOPA [Suspect]
     Active Substance: CARBIDOPA\LEVODOPA
     Dosage: MD: 11.5  CR: 3.7 ED: 1.5, 20MG/5MG
     Route: 050
     Dates: start: 20230906, end: 20240126
  5. CARBIDOPA\LEVODOPA [Suspect]
     Active Substance: CARBIDOPA\LEVODOPA
     Dosage: MD: 11.5  CR: 3.7 ED: 1.6
     Route: 050
     Dates: start: 20240126
  6. ROTIGOTINE [Concomitant]
     Active Substance: ROTIGOTINE
     Indication: Parkinson^s disease
     Route: 062

REACTIONS (22)
  - Spinal operation [Unknown]
  - Dyskinesia [Not Recovered/Not Resolved]
  - Device issue [Recovered/Resolved]
  - Fall [Unknown]
  - On and off phenomenon [Recovered/Resolved]
  - Tremor [Unknown]
  - Therapeutic product effect incomplete [Unknown]
  - Device loosening [Unknown]
  - Parkinson^s disease [Unknown]
  - Loss of personal independence in daily activities [Unknown]
  - Dystonia [Unknown]
  - Freezing phenomenon [Unknown]
  - On and off phenomenon [Unknown]
  - Tremor [Recovered/Resolved]
  - Unevaluable event [Unknown]
  - Incorrect route of product administration [Unknown]
  - Device occlusion [Unknown]
  - Muscle rigidity [Unknown]
  - Depressed mood [Unknown]
  - Fall [Recovered/Resolved]
  - Weight decreased [Unknown]
  - Freezing phenomenon [Unknown]

NARRATIVE: CASE EVENT DATE: 20230101
